FAERS Safety Report 9760336 (Version 1)
Quarter: 2013Q4

REPORT INFORMATION
  Report Type: Spontaneous
  Country: US (occurrence: US)
  Receive Date: 20131216
  Receipt Date: 20131216
  Transmission Date: 20140711
  Serious: No
  Sender: FDA-Public Use
  Company Number: US-GILEAD-2010-0028887

PATIENT
  Age: 84 Year
  Sex: Female

DRUGS (9)
  1. LETAIRIS [Suspect]
     Indication: PULMONARY ARTERIAL HYPERTENSION
     Route: 048
     Dates: start: 20100215
  2. CENTRUM SILVER [Concomitant]
  3. LASIX [Concomitant]
  4. KLOR-CON [Concomitant]
  5. BYSTOLIC [Concomitant]
  6. ADVAIR [Concomitant]
  7. COUMADIN [Concomitant]
  8. PRILOSEC [Concomitant]
  9. BENTYL [Concomitant]

REACTIONS (2)
  - Nightmare [Not Recovered/Not Resolved]
  - Sleep disorder [Not Recovered/Not Resolved]
